FAERS Safety Report 4323896-0 (Version None)
Quarter: 2004Q1

REPORT INFORMATION
  Report Type: 
  Country: None (occurrence: None)
  Receive Date: 20040326
  Receipt Date: 20030929
  Transmission Date: 20041129
  Serious: No
  Sender: FDA-Public Use
  Company Number: US-GLAXOSMITHKLINE-A0427897A

PATIENT
  Age: 64 Year
  Sex: Female
  Weight: 74.5 kg

DRUGS (4)
  1. ADVAIR DISKUS 100/50 [Suspect]
     Indication: ASTHMA
     Dosage: 1PUFF TWICE PER DAY
     Route: 055
  2. SINGULAIR [Concomitant]
  3. NORVASC [Concomitant]
     Dosage: 5MG PER DAY
     Route: 048
  4. ATENOLOL [Concomitant]
     Dosage: 12.5U PER DAY
     Route: 048

REACTIONS (1)
  - HOARSENESS [None]
